FAERS Safety Report 25362547 (Version 1)
Quarter: 2025Q2

REPORT INFORMATION
  Report Type: Spontaneous
  Country: DE (occurrence: DE)
  Receive Date: 20250527
  Receipt Date: 20250527
  Transmission Date: 20250717
  Serious: Yes (Other)
  Sender: MYLAN
  Company Number: DE-MYLANLABS-2025M1037562

PATIENT
  Sex: Female

DRUGS (8)
  1. SERTRALINE HYDROCHLORIDE [Interacting]
     Active Substance: SERTRALINE HYDROCHLORIDE
     Indication: Antidepressant therapy
  2. SERTRALINE HYDROCHLORIDE [Interacting]
     Active Substance: SERTRALINE HYDROCHLORIDE
     Indication: Rehabilitation therapy
     Route: 065
  3. SERTRALINE HYDROCHLORIDE [Interacting]
     Active Substance: SERTRALINE HYDROCHLORIDE
     Route: 065
  4. SERTRALINE HYDROCHLORIDE [Interacting]
     Active Substance: SERTRALINE HYDROCHLORIDE
  5. EUTHYROX [Interacting]
     Active Substance: LEVOTHYROXINE SODIUM
     Indication: Autoimmune thyroiditis
  6. EUTHYROX [Interacting]
     Active Substance: LEVOTHYROXINE SODIUM
     Route: 065
  7. EUTHYROX [Interacting]
     Active Substance: LEVOTHYROXINE SODIUM
     Route: 065
  8. EUTHYROX [Interacting]
     Active Substance: LEVOTHYROXINE SODIUM

REACTIONS (5)
  - Condition aggravated [Unknown]
  - Hypothyroidism [Unknown]
  - Apathy [Unknown]
  - Fatigue [Unknown]
  - Drug interaction [Unknown]

NARRATIVE: CASE EVENT DATE: 20141201
